FAERS Safety Report 16924153 (Version 1)
Quarter: 2019Q4

REPORT INFORMATION
  Report Type: Spontaneous
  Country: US (occurrence: US)
  Receive Date: 20190822
  Receipt Date: 20190822
  Transmission Date: 20200122
  Serious: Yes (Other)
  Sender: FDA-Public Use
  Company Number: None

PATIENT
  Age: 38 Year
  Sex: Female
  Weight: 88.45 kg

DRUGS (12)
  1. GADOTERATE MEGLUMINE [Suspect]
     Active Substance: GADOTERATE MEGLUMINE
     Indication: MAGNETIC RESONANCE IMAGING
     Dates: start: 20190712, end: 20190712
  2. UREA LOTION [Concomitant]
  3. HUMIDIFIER [Concomitant]
  4. TYLENOL [Concomitant]
     Active Substance: ACETAMINOPHEN
  5. PRN-HCTZ (REQUEST MADE TO CHANGE THIS TO LASIX) [Concomitant]
  6. LIVER RITE [Concomitant]
  7. LISINOPRIL. [Concomitant]
     Active Substance: LISINOPRIL
  8. LEVOTHYROXINE. [Concomitant]
     Active Substance: LEVOTHYROXINE
  9. LOVASTATIN. [Concomitant]
     Active Substance: LOVASTATIN
  10. PRN-IBUPROFEN (RECENT ALLERGIC RX TO IBUPROFEN) [Concomitant]
  11. MANNITOL FOOD GRADE [Concomitant]
  12. FERROUS SULFATE. [Concomitant]
     Active Substance: FERROUS SULFATE

REACTIONS (17)
  - Blood pressure increased [None]
  - Intraocular pressure increased [None]
  - Ear discomfort [None]
  - Skin disorder [None]
  - Glomerular filtration rate abnormal [None]
  - Induration [None]
  - Blood calcium decreased [None]
  - Skin lesion [None]
  - Intracranial pressure increased [None]
  - Steroid withdrawal syndrome [None]
  - Phlebitis [None]
  - Nasal congestion [None]
  - Diabetes insipidus [None]
  - Drug intolerance [None]
  - Ear congestion [None]
  - Heart rate increased [None]
  - Cough [None]
